FAERS Safety Report 6769564-7 (Version None)
Quarter: 2010Q2

REPORT INFORMATION
  Report Type: 
  Country: None (occurrence: None)
  Receive Date: 20100608
  Receipt Date: 20100602
  Transmission Date: 20101027
  Serious: Yes (Hospitalization)
  Sender: FDA-Public Use
  Company Number: 2010SP008392

PATIENT
  Age: 65 Year
  Sex: Male

DRUGS (18)
  1. TEMOZOLOMIDE [Suspect]
     Indication: METASTATIC MALIGNANT MELANOMA
     Dosage: 285 MG; QD; PO, 380 MG; QD; PO
     Route: 048
     Dates: start: 20091021, end: 20091025
  2. TEMOZOLOMIDE [Suspect]
     Indication: METASTATIC MALIGNANT MELANOMA
     Dosage: 285 MG; QD; PO, 380 MG; QD; PO
     Route: 048
     Dates: start: 20091118, end: 20091122
  3. ABT-888 (INVESTIGATIONAL DRUG) [Suspect]
     Indication: METASTATIC MALIGNANT MELANOMA
     Dosage: 20 MG; BID; PO, 20 MG; ; PO
     Route: 048
     Dates: start: 20091021, end: 20091027
  4. ABT-888 (INVESTIGATIONAL DRUG) [Suspect]
     Indication: METASTATIC MALIGNANT MELANOMA
     Dosage: 20 MG; BID; PO, 20 MG; ; PO
     Route: 048
     Dates: start: 20091118, end: 20091124
  5. FERROUS SULFATE TAB [Concomitant]
  6. LANSOPRAZOLE [Concomitant]
  7. ACETAMINOPHEN [Concomitant]
  8. PANTOPRAZOLE [Concomitant]
  9. TRANEXAMIC ACID [Concomitant]
  10. DOMPERIDONE [Concomitant]
  11. AUGMENTIN '125' [Concomitant]
  12. PIPERACILLIN AND TAZOBACTAM [Concomitant]
  13. GENTAMICIN [Concomitant]
  14. AMOXICILLIN [Concomitant]
  15. DEXAMETHASONE [Concomitant]
  16. BENZYDAMINE HYDROCHLORIDE [Concomitant]
  17. CHOLINE SALICYLATE [Concomitant]
  18. ONDANSETRON [Concomitant]

REACTIONS (21)
  - ABDOMINAL PAIN UPPER [None]
  - AORTIC DILATATION [None]
  - BLOOD CULTURE POSITIVE [None]
  - CHEST PAIN [None]
  - DIARRHOEA [None]
  - DIASTOLIC DYSFUNCTION [None]
  - DUODENITIS [None]
  - FEBRILE NEUTROPENIA [None]
  - GASTRIC HAEMORRHAGE [None]
  - GASTRITIS [None]
  - HAEMATEMESIS [None]
  - HAEMATOCHEZIA [None]
  - HAEMATOCRIT DECREASED [None]
  - HAEMOGLOBIN DECREASED [None]
  - NEUTROPENIA [None]
  - OESOPHAGITIS [None]
  - PNEUMONIA STREPTOCOCCAL [None]
  - STREPTOCOCCAL INFECTION [None]
  - THROMBOCYTOPENIA [None]
  - VOMITING [None]
  - WHITE BLOOD CELL COUNT DECREASED [None]
